FAERS Safety Report 9863899 (Version 6)
Quarter: 2016Q3

REPORT INFORMATION
  Report Type: Spontaneous
  Country: US (occurrence: US)
  Receive Date: 20140203
  Receipt Date: 20160818
  Transmission Date: 20161109
  Serious: Yes (Hospitalization, Disabling, Other)
  Sender: FDA-Public Use
  Company Number: US-009507513-1401USA013456

PATIENT
  Sex: Female
  Weight: 68.27 kg

DRUGS (8)
  1. BONIVA [Suspect]
     Active Substance: IBANDRONATE SODIUM
     Indication: OSTEOPENIA
  2. BONIVA [Suspect]
     Active Substance: IBANDRONATE SODIUM
     Indication: OSTEOPOROSIS
     Dosage: 150 MG, UNK
     Route: 048
     Dates: start: 20060920, end: 20120102
  3. FOSAMAX [Suspect]
     Active Substance: ALENDRONATE SODIUM
     Indication: OSTEOPOROSIS
     Dosage: 10 MG, QD
     Route: 048
     Dates: start: 20000614, end: 20010627
  4. FOSAMAX [Suspect]
     Active Substance: ALENDRONATE SODIUM
     Indication: OSTEOPENIA
     Dosage: 70 MG, QW
     Route: 048
     Dates: start: 20010709, end: 20040715
  5. ACTONEL [Suspect]
     Active Substance: RISEDRONATE SODIUM
     Indication: OSTEOPOROSIS
     Dosage: 150 MG, QM
     Route: 048
     Dates: start: 20120212, end: 20120718
  6. ACTONEL [Suspect]
     Active Substance: RISEDRONATE SODIUM
     Indication: OSTEOPENIA
  7. FOSAMAX [Suspect]
     Active Substance: ALENDRONATE SODIUM
     Dosage: 70 MG, QW
     Route: 048
     Dates: start: 20050123, end: 20050222
  8. FOSAMAX [Suspect]
     Active Substance: ALENDRONATE SODIUM
     Dosage: UNK
     Route: 048

REACTIONS (26)
  - Synovial cyst removal [Unknown]
  - Gastrooesophageal reflux disease [Unknown]
  - Intramedullary rod insertion [Unknown]
  - Hyperglycaemia [Unknown]
  - Neck pain [Unknown]
  - Bone debridement [Unknown]
  - Fall [Unknown]
  - Carpal tunnel decompression [Unknown]
  - Arthralgia [Unknown]
  - Femur fracture [Unknown]
  - Stress fracture [Unknown]
  - Insomnia [Unknown]
  - Low turnover osteopathy [Unknown]
  - Carpal tunnel syndrome [Unknown]
  - Hypertension [Unknown]
  - Oesophagitis [Recovered/Resolved]
  - Drug hypersensitivity [Unknown]
  - Hypophosphataemia [Unknown]
  - Blood alkaline phosphatase increased [Unknown]
  - Cardiomegaly [Unknown]
  - Joint arthroplasty [Unknown]
  - Diverticulitis [Unknown]
  - Osteoporosis [Unknown]
  - Femur fracture [Recovering/Resolving]
  - Hypercholesterolaemia [Unknown]
  - Musculoskeletal pain [Unknown]

NARRATIVE: CASE EVENT DATE: 2005
